FAERS Safety Report 4451116-5 (Version None)
Quarter: 2004Q3

REPORT INFORMATION
  Report Type: 
  Country: None (occurrence: None)
  Receive Date: 20040913
  Receipt Date: 20040616
  Transmission Date: 20050211
  Serious: No
  Sender: FDA-Public Use
  Company Number: 2004-BP-04839BP(0)

PATIENT
  Age: 90 Year
  Sex: 0
  Weight: 59 kg

DRUGS (4)
  1. SPIRIVA [Suspect]
     Indication: CHRONIC OBSTRUCTIVE AIRWAYS DISEASE
     Dosage: 18 MCG (18 MCG,1 INHALATION OD), IH
     Dates: start: 20030101, end: 20040101
  2. ATROVENT [Concomitant]
  3. ALBUTEROL [Concomitant]
  4. PREDNISONE [Concomitant]

REACTIONS (1)
  - BRONCHOSPASM [None]
